FAERS Safety Report 24662973 (Version 1)
Quarter: 2024Q4

REPORT INFORMATION
  Report Type: Spontaneous
  Country: IN (occurrence: IN)
  Receive Date: 20241126
  Receipt Date: 20241126
  Transmission Date: 20250114
  Serious: Yes (Death, Other)
  Sender: Unknown Manufacturer
  Company Number: IN-KOANAAP-SML-IN-2024-01137

PATIENT
  Age: 72 Year
  Sex: Male

DRUGS (2)
  1. PEMETREXED [Suspect]
     Active Substance: PEMETREXED
     Indication: Sarcomatoid mesothelioma
  2. CISPLATIN [Suspect]
     Active Substance: CISPLATIN
     Indication: Sarcomatoid mesothelioma
     Route: 065

REACTIONS (2)
  - Condition aggravated [Fatal]
  - Drug ineffective [Unknown]
